FAERS Safety Report 4347331-1 (Version None)
Quarter: 2004Q2

REPORT INFORMATION
  Report Type: 
  Country: None (occurrence: None)
  Receive Date: 20040426
  Receipt Date: 20040426
  Transmission Date: 20050107
  Serious: Yes (Hospitalization, Disabling)
  Sender: FDA-Public Use
  Company Number: None

PATIENT
  Sex: Female
  Weight: 50.8029 kg

DRUGS (7)
  1. REMERON [Suspect]
     Indication: ANXIETY
     Dosage: 35 MG EVERY NIGH ORAL
     Route: 048
     Dates: start: 20020301, end: 20020901
  2. REMERON [Suspect]
     Indication: DEPRESSION
     Dosage: 35 MG EVERY NIGH ORAL
     Route: 048
     Dates: start: 20020301, end: 20020901
  3. REMERON [Suspect]
     Indication: INSOMNIA
     Dosage: 35 MG EVERY NIGH ORAL
     Route: 048
     Dates: start: 20020301, end: 20020901
  4. REMERON [Suspect]
     Indication: OBSESSIVE-COMPULSIVE DISORDER
     Dosage: 35 MG EVERY NIGH ORAL
     Route: 048
     Dates: start: 20020301, end: 20020901
  5. WELLBUTRIN [Suspect]
     Indication: ANXIETY
     Dosage: 300 MG 3X A DAY ORAL
     Route: 048
     Dates: start: 19920201, end: 19950101
  6. WELLBUTRIN [Suspect]
     Indication: DEPRESSION
     Dosage: 300 MG 3X A DAY ORAL
     Route: 048
     Dates: start: 19920201, end: 19950101
  7. WELLBUTRIN [Suspect]
     Indication: OBSESSIVE-COMPULSIVE DISORDER
     Dosage: 300 MG 3X A DAY ORAL
     Route: 048
     Dates: start: 19920201, end: 19950101

REACTIONS (11)
  - AGITATION [None]
  - ANXIETY [None]
  - DEPRESSION [None]
  - GENERAL PHYSICAL HEALTH DETERIORATION [None]
  - HOSTILITY [None]
  - HYPOMANIA [None]
  - IMPULSIVE BEHAVIOUR [None]
  - INSOMNIA [None]
  - IRRITABILITY [None]
  - PANIC ATTACK [None]
  - SUICIDE ATTEMPT [None]
